FAERS Safety Report 8590235-9 (Version None)
Quarter: 2012Q3

REPORT INFORMATION
  Report Type: 
  Country: None (occurrence: None)
  Receive Date: 20120813
  Receipt Date: 20120807
  Transmission Date: 20120928
  Serious: Yes (Other)
  Sender: FDA-Public Use
  Company Number: US-BRISTOL-MYERS SQUIBB COMPANY-16687253

PATIENT
  Age: 77 Year
  Sex: Female

DRUGS (1)
  1. YERVOY [Suspect]
     Dosage: 5MG/ML;NDC00003-2327-11;00003-2328-22;918360;918121;7/14 10APR12,917376 31JAN14 918122,EX:31MAY14
     Route: 042
     Dates: start: 20120306, end: 20120515

REACTIONS (1)
  - NEOPLASM MALIGNANT [None]
